FAERS Safety Report 15733074 (Version 1)
Quarter: 2018Q4

REPORT INFORMATION
  Report Type: Spontaneous
  Country: US (occurrence: US)
  Receive Date: 20181218
  Receipt Date: 20181218
  Transmission Date: 20190205
  Serious: No
  Sender: FDA-Public Use
  Company Number: US-DRREDDYS-USA/USA/17/0094817

PATIENT
  Age: 74 Year
  Sex: Female
  Weight: 41.8 kg

DRUGS (2)
  1. NICOTINE. [Suspect]
     Active Substance: NICOTINE
     Indication: SMOKING CESSATION THERAPY
     Route: 065
     Dates: start: 20171204, end: 20171205
  2. PROPAFENONE. [Concomitant]
     Active Substance: PROPAFENONE
     Indication: PALPITATIONS

REACTIONS (2)
  - Pain in extremity [Recovered/Resolved]
  - Nightmare [Not Recovered/Not Resolved]

NARRATIVE: CASE EVENT DATE: 20171204
